FAERS Safety Report 23823628 (Version 1)
Quarter: 2024Q2

REPORT INFORMATION
  Report Type: Spontaneous
  Country: US (occurrence: US)
  Receive Date: 20240507
  Receipt Date: 20240507
  Transmission Date: 20240715
  Serious: Yes (Other)
  Sender: FDA-Public Use
  Company Number: US-RISINGPHARMA-US-2024RISLIT00114

PATIENT
  Age: 36 Year
  Sex: Female

DRUGS (4)
  1. CLONIDINE HYDROCHLORIDE [Suspect]
     Active Substance: CLONIDINE HYDROCHLORIDE
     Indication: Hypertension
     Route: 062
  2. LABETALOL HYDROCHLORIDE [Suspect]
     Active Substance: LABETALOL\LABETALOL HYDROCHLORIDE
     Indication: Hypertension
     Route: 048
  3. NIFEDIPINE [Suspect]
     Active Substance: NIFEDIPINE
     Indication: Hypertension
     Route: 065
  4. HYDRALAZINE HYDROCHLORIDE [Suspect]
     Active Substance: HYDRALAZINE HYDROCHLORIDE
     Indication: Hypertension
     Route: 042

REACTIONS (2)
  - Drug ineffective [Unknown]
  - Maternal exposure during pregnancy [Unknown]
